FAERS Safety Report 5479766-8 (Version None)
Quarter: 2007Q4

REPORT INFORMATION
  Report Type: 
  Country: None (occurrence: None)
  Receive Date: 20071008
  Receipt Date: 20070925
  Transmission Date: 20080405
  Serious: Yes (Other)
  Sender: FDA-Public Use
  Company Number: PR-SHR-PR-2007-027259

PATIENT
  Age: 47 Year
  Sex: Female
  Weight: 80.7 kg

DRUGS (2)
  1. BETASERON [Suspect]
     Route: 058
     Dates: start: 20060926, end: 20070216
  2. BETASERON [Suspect]
     Dosage: 8 MIU, EVERY 2D
     Route: 058
     Dates: start: 20070223

REACTIONS (9)
  - ANAEMIA [None]
  - CHEST DISCOMFORT [None]
  - CHILLS [None]
  - DYSPNOEA [None]
  - HEART RATE INCREASED [None]
  - HYPERHIDROSIS [None]
  - INJECTION SITE PAIN [None]
  - MULTIPLE SCLEROSIS [None]
  - PALPITATIONS [None]
